FAERS Safety Report 17111461 (Version 1)
Quarter: 2019Q4

REPORT INFORMATION
  Report Type: Spontaneous
  Country: GB (occurrence: GB)
  Receive Date: 20191204
  Receipt Date: 20191204
  Transmission Date: 20200122
  Serious: Yes (Other)
  Sender: FDA-Public Use
  Company Number: GB-JNJFOC-20191135588

PATIENT
  Age: 39 Year
  Sex: Female

DRUGS (1)
  1. TREMFYA [Suspect]
     Active Substance: GUSELKUMAB
     Indication: PSORIASIS
     Route: 058
     Dates: start: 20190408, end: 20191021

REACTIONS (5)
  - Hypersomnia [Recovering/Resolving]
  - Social avoidant behaviour [Recovering/Resolving]
  - Decreased interest [Recovering/Resolving]
  - Disturbance in attention [Recovering/Resolving]
  - Depression [Not Recovered/Not Resolved]

NARRATIVE: CASE EVENT DATE: 20190408
